FAERS Safety Report 7725046-7 (Version None)
Quarter: 2011Q3

REPORT INFORMATION
  Report Type: 
  Country: None (occurrence: None)
  Receive Date: 20110901
  Receipt Date: 20110829
  Transmission Date: 20111222
  Serious: Yes (Other)
  Sender: FDA-Public Use
  Company Number: US-PFIZER INC-2011189651

PATIENT
  Sex: Female
  Weight: 77.098 kg

DRUGS (2)
  1. ZOLOFT [Suspect]
     Indication: SUICIDAL IDEATION
     Dosage: 150 MG DAILY
     Route: 048
     Dates: start: 19980101
  2. ZOLOFT [Suspect]
     Indication: MAJOR DEPRESSION
     Dosage: 100MG DAILY
     Route: 048
     Dates: start: 19950101

REACTIONS (3)
  - VITAMIN D DECREASED [None]
  - COELIAC DISEASE [None]
  - AUTOIMMUNE DISORDER [None]
